FAERS Safety Report 4344043-5 (Version None)
Quarter: 2004Q2

REPORT INFORMATION
  Report Type: 
  Country: None (occurrence: None)
  Receive Date: 20040419
  Receipt Date: 20040405
  Transmission Date: 20050107
  Serious: Yes (Life-Threatening)
  Sender: FDA-Public Use
  Company Number: 2004208369FR

PATIENT
  Age: 52 Year
  Sex: Female
  Weight: 70 kg

DRUGS (5)
  1. CELOCURINE (SUXAMETHONIUM) SOLUTION, STERILE [Suspect]
     Dosage: 70 MG/DAY, IV
     Route: 042
     Dates: start: 20030223, end: 20040223
  2. CLINDAMYCIN [Suspect]
     Dosage: 600 MG, IV
     Route: 042
     Dates: start: 20040223, end: 20040223
  3. SULFENTANIL CITRATE [Suspect]
     Dosage: 15 UG/DAY, IV
     Route: 042
     Dates: start: 20040223, end: 20040223
  4. XYLOCAINE [Concomitant]
  5. DIPRIVAN [Concomitant]

REACTIONS (1)
  - HYPOXIA [None]
